FAERS Safety Report 8359750-7 (Version None)
Quarter: 2012Q2

REPORT INFORMATION
  Report Type: 
  Country: None (occurrence: None)
  Receive Date: 20120515
  Receipt Date: 20120504
  Transmission Date: 20120825
  Serious: Yes (Hospitalization, Other)
  Sender: FDA-Public Use
  Company Number: PHFR2011GB05251

PATIENT
  Sex: Male
  Weight: 84.5 kg

DRUGS (6)
  1. CLOZARIL [Suspect]
     Indication: SCHIZOPHRENIA
     Dosage: 525 MG, (100 MG IN MORNING AND 425 MG IN EVENING)
     Route: 048
     Dates: start: 20070906
  2. LORATADINE [Concomitant]
     Dosage: 10 MG, DAILY
     Route: 048
  3. AMISULPRIDE [Concomitant]
     Dosage: 300 MG, BID
     Route: 048
  4. ATOMOXETINE HCL [Concomitant]
     Dosage: 40 MG, IN MORNING
     Route: 048
  5. HYOSCINE HYDROBROMIDE [Concomitant]
     Dosage: 300 UG, BID
     Route: 048
     Dates: start: 20070101
  6. DOXORUBICIN HCL [Concomitant]
     Indication: NON-HODGKIN'S LYMPHOMA
     Dosage: UNK UKN, UNK
     Route: 042

REACTIONS (5)
  - AGGRESSION [None]
  - WHITE BLOOD CELL COUNT DECREASED [None]
  - NEUTROPHIL COUNT DECREASED [None]
  - PARANOIA [None]
  - NAUSEA [None]
